FAERS Safety Report 5613342-9 (Version None)
Quarter: 2008Q1

REPORT INFORMATION
  Report Type: 
  Country: None (occurrence: None)
  Receive Date: 20080129
  Receipt Date: 20080118
  Transmission Date: 20080703
  Serious: Yes (Hospitalization)
  Sender: FDA-Public Use
  Company Number: 2007SP023605

PATIENT
  Sex: Female
  Weight: 60 kg

DRUGS (2)
  1. MOMETASONE FUROATE [Suspect]
     Indication: ASTHMA
     Dosage: 400 MCG;BID;PO
     Route: 048
     Dates: start: 20071009
  2. QUAMATEL [Concomitant]

REACTIONS (5)
  - BRONCHIAL IRRITATION [None]
  - CHEST PAIN [None]
  - GASTRITIS EROSIVE [None]
  - HAEMATEMESIS [None]
  - HAEMOPTYSIS [None]
